FAERS Safety Report 6035900-2 (Version None)
Quarter: 2009Q1

REPORT INFORMATION
  Report Type: 
  Country: None (occurrence: None)
  Receive Date: 20090113
  Receipt Date: 20090109
  Transmission Date: 20090719
  Serious: Yes (Hospitalization)
  Sender: FDA-Public Use
  Company Number: A0718189A

PATIENT
  Age: 66 Year
  Sex: Female
  Weight: 100 kg

DRUGS (7)
  1. AVANDIA [Suspect]
     Dosage: 8MG PER DAY
     Route: 048
     Dates: start: 20050121, end: 20070630
  2. TRIAMTERENE AND HYDROCHLOROTHIAZIDE [Concomitant]
  3. GLIMEPIRIDE [Concomitant]
  4. BYETTA [Concomitant]
  5. LANTUS [Concomitant]
  6. GLUCOTROL [Concomitant]
  7. HYDROCODONE BITARTRATE [Concomitant]

REACTIONS (2)
  - CARDIAC FAILURE CONGESTIVE [None]
  - HEART INJURY [None]
